FAERS Safety Report 12678569 (Version 3)
Quarter: 2016Q4

REPORT INFORMATION
  Report Type: Spontaneous
  Country: US (occurrence: US)
  Receive Date: 20160823
  Receipt Date: 20161025
  Transmission Date: 20170207
  Serious: No
  Sender: FDA-Public Use
  Company Number: US-PFIZER INC-2016397612

PATIENT
  Age: 7 Year
  Sex: Female

DRUGS (2)
  1. QUILLIVANT XR [Suspect]
     Active Substance: METHYLPHENIDATE HYDROCHLORIDE
     Dosage: 2.5 ML, DAILY EVERY MORNING
     Route: 048
     Dates: start: 201605, end: 20160602
  2. QUILLIVANT XR [Suspect]
     Active Substance: METHYLPHENIDATE HYDROCHLORIDE
     Indication: ATTENTION DEFICIT/HYPERACTIVITY DISORDER
     Dosage: 5 ML, 1X/DAY (QD)
     Route: 048
     Dates: start: 20160506, end: 201605

REACTIONS (2)
  - Decreased appetite [Recovering/Resolving]
  - Abdominal pain upper [Recovered/Resolved]

NARRATIVE: CASE EVENT DATE: 201605
